FAERS Safety Report 8148393-6 (Version None)
Quarter: 2012Q1

REPORT INFORMATION
  Report Type: 
  Country: None (occurrence: None)
  Receive Date: 20120218
  Receipt Date: 20110601
  Transmission Date: 20120608
  Serious: No
  Sender: FDA-Public Use
  Company Number: US-ALLERGAN-1107305US

PATIENT
  Age: 59 Year
  Sex: Female

DRUGS (8)
  1. BOTOX COSMETIC [Suspect]
     Indication: SKIN WRINKLING
     Dosage: 28 UNITS, SINGLE
     Route: 030
     Dates: start: 20110523, end: 20110523
  2. CYMBALTA [Concomitant]
     Indication: NECK PAIN
  3. THYROID MEDICATION [Concomitant]
  4. XANAX [Concomitant]
     Indication: SLEEP DISORDER
  5. JUVEDERM [Concomitant]
  6. CYMBALTA [Concomitant]
     Indication: PAIN IN EXTREMITY
  7. IMITREX [Concomitant]
     Indication: MIGRAINE
  8. VITAMIN D [Concomitant]
     Dosage: 50000 UNITS, Q WEEK

REACTIONS (3)
  - DRY THROAT [None]
  - DYSPHONIA [None]
  - PHARYNGEAL HAEMORRHAGE [None]
